FAERS Safety Report 24799649 (Version 1)
Quarter: 2025Q1

REPORT INFORMATION
  Report Type: Report from Study
  Country: US (occurrence: US)
  Receive Date: 20250102
  Receipt Date: 20250102
  Transmission Date: 20250409
  Serious: Yes (Hospitalization)
  Sender: ABBVIE
  Company Number: US-ABBVIE-6068408

PATIENT
  Age: 69 Year
  Sex: Male

DRUGS (1)
  1. RINVOQ [Suspect]
     Active Substance: UPADACITINIB
     Indication: Colitis ulcerative
     Dosage: FORM STRENGTH: 15 MG
     Route: 048
     Dates: start: 20240923

REACTIONS (8)
  - Cardiac disorder [Unknown]
  - Asthenia [Unknown]
  - Fatigue [Unknown]
  - Nausea [Unknown]
  - Arthralgia [Unknown]
  - Abdominal pain [Unknown]
  - Sinusitis [Unknown]
  - Headache [Unknown]

NARRATIVE: CASE EVENT DATE: 20240101
